FAERS Safety Report 5484913-8 (Version None)
Quarter: 2007Q4

REPORT INFORMATION
  Report Type: 
  Country: None (occurrence: None)
  Receive Date: 20071011
  Receipt Date: 20070928
  Transmission Date: 20080405
  Serious: Yes (Death)
  Sender: FDA-Public Use
  Company Number: 2007332107

PATIENT
  Age: 24 Month
  Sex: Female

DRUGS (1)
  1. BENADRYL [Suspect]
     Dosage: ORAL
     Route: 048

REACTIONS (1)
  - INTENTIONAL OVERDOSE [None]
